FAERS Safety Report 25318883 (Version 1)
Quarter: 2025Q2

REPORT INFORMATION
  Report Type: Spontaneous
  Country: US (occurrence: US)
  Receive Date: 20250515
  Receipt Date: 20250515
  Transmission Date: 20250717
  Serious: Yes (Other)
  Sender: ADVANZ PHARMA
  Company Number: US-ADVANZ PHARMA-202505003453

PATIENT

DRUGS (4)
  1. HYDROXYCHLOROQUINE [Suspect]
     Active Substance: HYDROXYCHLOROQUINE
     Indication: Chronic cutaneous lupus erythematosus
  2. SPEVIGO [Suspect]
     Active Substance: SPESOLIMAB-SBZO
     Indication: Generalised pustular psoriasis
     Route: 058
     Dates: start: 20250205
  3. SPEVIGO [Suspect]
     Active Substance: SPESOLIMAB-SBZO
     Route: 058
     Dates: start: 20250305
  4. CYCLOSPORINE [Concomitant]
     Active Substance: CYCLOSPORINE
     Indication: Product used for unknown indication
     Dates: start: 20250303

REACTIONS (4)
  - Generalised pustular psoriasis [Unknown]
  - Arthralgia [Unknown]
  - Skin lesion [Unknown]
  - Fatigue [Unknown]
